FAERS Safety Report 16726119 (Version 1)
Quarter: 2019Q3

REPORT INFORMATION
  Report Type: Report from Study
  Country: IT (occurrence: IT)
  Receive Date: 20190821
  Receipt Date: 20190821
  Transmission Date: 20191005
  Serious: Yes (Hospitalization)
  Sender: FDA-Public Use
  Company Number: IT-BAUSCH-BL-2019-023346

PATIENT
  Age: 82 Year
  Sex: Female

DRUGS (4)
  1. TAPENTADOL [Interacting]
     Active Substance: TAPENTADOL
     Indication: PAIN
     Route: 048
  2. MACROGOL 4000 [Concomitant]
     Active Substance: POLYETHYLENE GLYCOL 4000
     Indication: PRODUCT USED FOR UNKNOWN INDICATION
  3. TRIAZOLAM. [Interacting]
     Active Substance: TRIAZOLAM
     Indication: PAIN
     Route: 048
  4. DICLOFENAC [Suspect]
     Active Substance: DICLOFENAC
     Indication: PAIN
     Dosage: 1 DOSAGE FORMS AS REQUIRED
     Route: 061

REACTIONS (4)
  - Asthenia [Recovering/Resolving]
  - Dyspnoea [Recovering/Resolving]
  - Ulcer [Recovering/Resolving]
  - Chest pain [Recovering/Resolving]

NARRATIVE: CASE EVENT DATE: 20190627
